FAERS Safety Report 6307587-2 (Version None)
Quarter: 2009Q3

REPORT INFORMATION
  Report Type: 
  Country: None (occurrence: None)
  Receive Date: 20090810
  Receipt Date: 20090731
  Transmission Date: 20100115
  Serious: Yes (Hospitalization)
  Sender: FDA-Public Use
  Company Number: 20097066

PATIENT
  Age: 29 Year
  Sex: Male

DRUGS (3)
  1. LIORESAL [Suspect]
     Indication: MUSCLE SPASTICITY
     Dosage: 739.9 MCG, DAILY, INTRATHECAL
     Route: 037
  2. VALIUM [Concomitant]
  3. SUPPOSITORY FOR BOWEL PROGRAM [Concomitant]

REACTIONS (5)
  - CATHETER RELATED COMPLICATION [None]
  - DRUG WITHDRAWAL SYNDROME [None]
  - MUSCLE SPASTICITY [None]
  - PRURITUS [None]
  - TREMOR [None]
